FAERS Safety Report 8390686-1 (Version None)
Quarter: 2012Q2

REPORT INFORMATION
  Report Type: 
  Country: None (occurrence: None)
  Receive Date: 20120529
  Receipt Date: 20120517
  Transmission Date: 20120825
  Serious: Yes (Other)
  Sender: FDA-Public Use
  Company Number: AU-BRISTOL-MYERS SQUIBB COMPANY-16631327

PATIENT
  Age: 76 Year
  Sex: Female
  Weight: 75 kg

DRUGS (15)
  1. ATACAND [Concomitant]
  2. LUMIGAN [Concomitant]
  3. METHOTREXATE [Concomitant]
  4. ATROVENT [Concomitant]
  5. FOLIC ACID [Concomitant]
  6. ACETAMINOPHEN [Concomitant]
  7. MOTILIUM [Concomitant]
  8. LUMIN [Concomitant]
  9. BUPRENORPHINE [Concomitant]
  10. NEXIUM [Concomitant]
  11. PRADAXA [Concomitant]
  12. SIMVASTATIN [Concomitant]
  13. PREDNISOLONE [Concomitant]
  14. ORENCIA [Suspect]
     Indication: RHEUMATOID ARTHRITIS
     Dosage: 23AUG11-CONT
     Route: 042
     Dates: start: 20110823
  15. DIGOXIN [Concomitant]

REACTIONS (1)
  - PULMONARY OEDEMA [None]
